FAERS Safety Report 17106404 (Version 3)
Quarter: 2021Q4

REPORT INFORMATION
  Report Type: Spontaneous
  Country: US (occurrence: US)
  Receive Date: 20191203
  Receipt Date: 20211230
  Transmission Date: 20220304
  Serious: Yes (Other)
  Sender: FDA-Public Use
  Company Number: US-PFIZER INC-2019521091

PATIENT
  Age: 74 Year
  Sex: Female

DRUGS (3)
  1. PREGABALIN [Suspect]
     Active Substance: PREGABALIN
     Indication: Facial pain
     Dosage: 150 MG
  2. PREGABALIN [Suspect]
     Active Substance: PREGABALIN
     Indication: Trigeminal neuralgia
  3. PREGABALIN [Suspect]
     Active Substance: PREGABALIN
     Indication: Headache

REACTIONS (2)
  - Seizure [Unknown]
  - Drug ineffective [Unknown]
